FAERS Safety Report 24170708 (Version 1)
Quarter: 2024Q3

REPORT INFORMATION
  Report Type: Spontaneous
  Country: US (occurrence: None)
  Receive Date: 20240803
  Receipt Date: 20240803
  Transmission Date: 20241017
  Serious: Yes (Hospitalization)
  Sender: Public
  Company Number: None

PATIENT
  Sex: Male
  Weight: 103.3 kg

DRUGS (7)
  1. CYCLOPHOSPHAMIDE [Suspect]
     Active Substance: CYCLOPHOSPHAMIDE
  2. CYTARABINE [Concomitant]
     Active Substance: CYTARABINE
  3. Dasatinib (EMS-354825, Sprycel) [Concomitant]
  4. DEXAMETHASONE [Concomitant]
     Active Substance: DEXAMETHASONE
  5. Doxombicin hydrochloride [Concomitant]
  6. MESNA [Concomitant]
     Active Substance: MESNA
  7. VINCRISTINE SULFATE [Concomitant]

REACTIONS (2)
  - Pleural effusion [None]
  - Anaemia [None]

NARRATIVE: CASE EVENT DATE: 20240801
